FAERS Safety Report 11342440 (Version 6)
Quarter: 2019Q3

REPORT INFORMATION
  Report Type: Report from Study
  Country: JP (occurrence: JP)
  Receive Date: 20150805
  Receipt Date: 20190826
  Transmission Date: 20191004
  Serious: Yes (Hospitalization)
  Sender: FDA-Public Use
  Company Number: JP-OTSUKA-2015_004132

PATIENT
  Age: 55 Year
  Sex: Female
  Weight: 58.2 kg

DRUGS (5)
  1. TOLVAPTAN [Suspect]
     Active Substance: TOLVAPTAN
     Dosage: 15 MG, QD, IN THE EVENING
     Route: 048
     Dates: start: 20150407, end: 20150618
  2. MICARDIS [Concomitant]
     Active Substance: TELMISARTAN
     Indication: PRODUCT USED FOR UNKNOWN INDICATION
     Dosage: 40 MG, QD
     Route: 048
     Dates: start: 20141120, end: 20160128
  3. MICARDIS [Concomitant]
     Active Substance: TELMISARTAN
     Dosage: 60 MG, QD
     Route: 048
     Dates: start: 20160129, end: 20160324
  4. TOLVAPTAN [Suspect]
     Active Substance: TOLVAPTAN
     Indication: CONGENITAL CYSTIC KIDNEY DISEASE
     Dosage: 30 MG, QD, IN THE MORNING
     Route: 048
     Dates: start: 20150407, end: 20150618
  5. MICARDIS [Concomitant]
     Active Substance: TELMISARTAN
     Dosage: 80 MG, QD
     Route: 048
     Dates: start: 20160325

REACTIONS (1)
  - Drug-induced liver injury [Recovered/Resolved]

NARRATIVE: CASE EVENT DATE: 20150608
